FAERS Safety Report 7434243-X (Version None)
Quarter: 2011Q2

REPORT INFORMATION
  Report Type: 
  Country: None (occurrence: None)
  Receive Date: 20110425
  Receipt Date: 20110419
  Transmission Date: 20111010
  Serious: No
  Sender: FDA-Public Use
  Company Number: US-PFIZER INC-2011085788

PATIENT
  Sex: Female
  Weight: 71.2 kg

DRUGS (4)
  1. ACETYLSALICYLIC ACID [Concomitant]
     Dosage: UNK
  2. LITHIUM [Concomitant]
     Dosage: UNK
  3. PRISTIQ [Suspect]
     Indication: DEPRESSION
     Dosage: 50 MG, 1X/DAY
     Route: 048
     Dates: start: 20090801
  4. PRAVASTATIN [Concomitant]
     Dosage: UNK

REACTIONS (6)
  - DIZZINESS [None]
  - BALANCE DISORDER [None]
  - LETHARGY [None]
  - EYE MOVEMENT DISORDER [None]
  - FEELING ABNORMAL [None]
  - ABDOMINAL PAIN UPPER [None]
